FAERS Safety Report 25520738 (Version 1)
Quarter: 2025Q3

REPORT INFORMATION
  Report Type: Spontaneous
  Country: CA (occurrence: CA)
  Receive Date: 20250705
  Receipt Date: 20250705
  Transmission Date: 20251020
  Serious: Yes (Hospitalization)
  Sender: NOVITIUM PHARMA
  Company Number: CA-NOVITIUMPHARMA-2025CANVP01528

PATIENT
  Age: 51 Year
  Sex: Male

DRUGS (7)
  1. LIDOCAINE HYDROCHLORIDE [Suspect]
     Active Substance: LIDOCAINE HYDROCHLORIDE
     Indication: Local anaesthesia
  2. BUPIVACAINE [Concomitant]
     Active Substance: BUPIVACAINE
     Indication: Local anaesthesia
  3. EPINEPHRINE [Concomitant]
     Active Substance: EPINEPHRINE
     Indication: Local anaesthesia
  4. DIAZEPAM [Concomitant]
     Active Substance: DIAZEPAM
  5. ARTICAINE [Concomitant]
     Active Substance: ARTICAINE
     Indication: Local anaesthesia
  6. FINASTERIDE [Concomitant]
     Active Substance: FINASTERIDE
  7. TESTOSTERONE CYPIONATE [Concomitant]
     Active Substance: TESTOSTERONE CYPIONATE

REACTIONS (3)
  - Hyperaesthesia [Recovering/Resolving]
  - Nausea [Unknown]
  - Vomiting [Unknown]
